FAERS Safety Report 20920231 (Version 1)
Quarter: 2022Q2

REPORT INFORMATION
  Report Type: Spontaneous
  Country: RU (occurrence: None)
  Receive Date: 20220606
  Receipt Date: 20220606
  Transmission Date: 20220720
  Serious: Yes (Life-Threatening, Hospitalization, Other)
  Sender: FDA-Public Use
  Company Number: 2022A208970

PATIENT
  Sex: Female

DRUGS (6)
  1. DAPAGLIFLOZIN [Suspect]
     Active Substance: DAPAGLIFLOZIN
     Indication: Cardiac failure
     Route: 048
  2. OMEPRAZOLE [Suspect]
     Active Substance: OMEPRAZOLE
     Route: 048
  3. BETA-BLOCKERS [Concomitant]
  4. UNSPECIFIED INGREDIENT [Concomitant]
     Active Substance: UNSPECIFIED INGREDIENT
  5. ATORVASTATIN [Concomitant]
     Active Substance: ATORVASTATIN
  6. FLUIMUCIL (ACETYLCYSTEINE) [Concomitant]

REACTIONS (2)
  - Hypoglycaemia [Recovered/Resolved]
  - Pneumonia bacterial [Unknown]
